FAERS Safety Report 7246329-3 (Version None)
Quarter: 2011Q1

REPORT INFORMATION
  Report Type: 
  Country: None (occurrence: None)
  Receive Date: 20110126
  Receipt Date: 20110121
  Transmission Date: 20110831
  Serious: Yes (Hospitalization, Other)
  Sender: FDA-Public Use
  Company Number: PL-PFIZER INC-2011010974

PATIENT
  Age: 14 Year
  Sex: Male

DRUGS (4)
  1. DEXAMETHASON ^COPHAR^ [Suspect]
     Dosage: 2 MG, 1X/DAY
  2. SOLU-MEDROL [Suspect]
     Dosage: 1 G, ALTERNATE DAY
     Dates: start: 20080901
  3. DEXAMETHASON ^COPHAR^ [Suspect]
     Dosage: 1 MG, 1X/DAY
  4. DEXAMETHASON ^COPHAR^ [Suspect]
     Dosage: 1.5 MG, 1X/DAY
     Dates: start: 20090101, end: 20090301

REACTIONS (3)
  - WEIGHT INCREASED [None]
  - DEPRESSION [None]
  - SKIN STRIAE [None]
